FAERS Safety Report 6827888-9 (Version None)
Quarter: 2010Q3

REPORT INFORMATION
  Report Type: 
  Country: None (occurrence: None)
  Receive Date: 20100709
  Receipt Date: 20100623
  Transmission Date: 20110219
  Serious: Yes (Hospitalization)
  Sender: FDA-Public Use
  Company Number: A0863307A

PATIENT
  Age: 44 Year
  Sex: Male
  Weight: 125 kg

DRUGS (5)
  1. AVANDIA [Suspect]
     Indication: DIABETES MELLITUS
     Dosage: 4MG PER DAY
     Route: 048
     Dates: start: 20041101, end: 20070701
  2. TOPROL-XL [Concomitant]
  3. FLEXERIL [Concomitant]
  4. GLUCOPHAGE [Concomitant]
  5. PRILOSEC [Concomitant]

REACTIONS (2)
  - ARTERIOSCLEROSIS CORONARY ARTERY [None]
  - CORONARY ARTERY DISEASE [None]
